FAERS Safety Report 5167786-2 (Version None)
Quarter: 2006Q4

REPORT INFORMATION
  Report Type: 
  Country: None (occurrence: None)
  Receive Date: 20061208
  Receipt Date: 20061031
  Transmission Date: 20070319
  Serious: Yes (Hospitalization)
  Sender: FDA-Public Use
  Company Number: PHMT2006CA02070

PATIENT
  Age: 12 Year
  Sex: Male

DRUGS (3)
  1. RISPERIDONE [Suspect]
     Indication: AUTISM
     Dosage: 1 MG BID
     Route: 048
     Dates: start: 20010101
  2. RISPERIDONE [Suspect]
     Dosage: 1MG AM, 1.5 MG HS
     Route: 048
  3. TEGRETOL [Suspect]
     Indication: EPILEPSY
     Dosage: 150 MG BID
     Route: 048
     Dates: start: 20060711, end: 20061117

REACTIONS (3)
  - ABNORMAL BEHAVIOUR [None]
  - AGGRESSION [None]
  - DRUG INTERACTION [None]
